FAERS Safety Report 7558914-X (Version None)
Quarter: 2011Q2

REPORT INFORMATION
  Report Type: 
  Country: None (occurrence: None)
  Receive Date: 20110621
  Receipt Date: 20110609
  Transmission Date: 20111010
  Serious: Yes (Life-Threatening, Hospitalization, Other)
  Sender: FDA-Public Use
  Company Number: FR-JNJFOC-20110600967

PATIENT
  Age: 10 Year
  Sex: Female
  Weight: 29 kg

DRUGS (11)
  1. PREDNISONE [Concomitant]
     Indication: CROHN'S DISEASE
     Dates: start: 20110430
  2. POLARAMINE [Concomitant]
     Indication: PREMEDICATION
     Route: 042
  3. REMICADE [Suspect]
     Indication: COLITIS
     Route: 042
     Dates: start: 20110513
  4. FOLIC ACID [Concomitant]
  5. FORTIMEL [Concomitant]
  6. PHOSPHONEUROS [Concomitant]
  7. REMICADE [Suspect]
     Route: 042
     Dates: start: 20110527, end: 20110527
  8. REMICADE [Suspect]
     Indication: CROHN'S DISEASE
     Route: 042
     Dates: start: 20110513
  9. REMICADE [Suspect]
     Route: 042
     Dates: start: 20110527, end: 20110527
  10. CALCIUM CARBONATE [Concomitant]
  11. HYDROCORTISONE HEMISUCCINATE [Concomitant]
     Indication: PREMEDICATION
     Route: 042

REACTIONS (2)
  - ANAPHYLACTIC SHOCK [None]
  - INFUSION RELATED REACTION [None]
